FAERS Safety Report 15126913 (Version 4)
Quarter: 2018Q3

REPORT INFORMATION
  Report Type: Spontaneous
  Country: US (occurrence: US)
  Receive Date: 20180710
  Receipt Date: 20180829
  Transmission Date: 20181010
  Serious: No
  Sender: FDA-Public Use
  Company Number: US-PFIZER INC-2018278054

PATIENT
  Age: 85 Year
  Sex: Male
  Weight: 67 kg

DRUGS (4)
  1. SUTENT [Suspect]
     Active Substance: SUNITINIB MALATE
     Indication: RENAL CANCER METASTATIC
     Dosage: 50 MG, CYCLIC (50MG CAPSULES BY MOUTH ONCE DAILY. TAKE FOR 2 WEEKS ON AND THEN ONE WEEK OFF)
     Route: 048
     Dates: start: 20180529, end: 2018
  2. SUTENT [Suspect]
     Active Substance: SUNITINIB MALATE
     Dosage: 37.5 MG, 1X/DAY
     Route: 048
     Dates: start: 2018
  3. SUTENT [Suspect]
     Active Substance: SUNITINIB MALATE
     Dosage: 50 MG, CYCLIC (50MG CAPSULE BY MOUTH DAILY FOR 14 DAYS, OFF FOR 7 DAYS)
     Route: 048
     Dates: start: 20180602, end: 2018
  4. METOPROLOL. [Concomitant]
     Active Substance: METOPROLOL
     Indication: HYPERTENSION
     Dosage: 50 MG, DAILY
     Dates: start: 2008

REACTIONS (13)
  - Feeling abnormal [Unknown]
  - Condition aggravated [Not Recovered/Not Resolved]
  - Chills [Unknown]
  - Body temperature increased [Unknown]
  - Skin discolouration [Unknown]
  - Impaired quality of life [Not Recovered/Not Resolved]
  - Confusional state [Not Recovered/Not Resolved]
  - Limb mass [Unknown]
  - Hyperhidrosis [Not Recovered/Not Resolved]
  - Discomfort [Not Recovered/Not Resolved]
  - Weight decreased [Not Recovered/Not Resolved]
  - Lethargy [Not Recovered/Not Resolved]
  - Hypersomnia [Not Recovered/Not Resolved]

NARRATIVE: CASE EVENT DATE: 2018
